FAERS Safety Report 26185451 (Version 1)
Quarter: 2025Q4

REPORT INFORMATION
  Report Type: Spontaneous
  Country: US (occurrence: US)
  Receive Date: 20251222
  Receipt Date: 20251222
  Transmission Date: 20260118
  Serious: Yes (Hospitalization)
  Sender: TRAVERE THERAPEUTICS
  Company Number: US-TRAVERE-2025TVT02476

PATIENT
  Sex: Male

DRUGS (2)
  1. FILSPARI [Suspect]
     Active Substance: SPARSENTAN
     Indication: IgA nephropathy
     Route: 048
     Dates: start: 202410
  2. FILSPARI [Suspect]
     Active Substance: SPARSENTAN
     Indication: Haematuria

REACTIONS (4)
  - Pneumonia [Unknown]
  - Diverticulitis [Unknown]
  - Deep vein thrombosis [Unknown]
  - Blood potassium increased [Unknown]
